FAERS Safety Report 19034700 (Version 2)
Quarter: 2021Q1

REPORT INFORMATION
  Report Type: Spontaneous
  Country: US (occurrence: US)
  Receive Date: 20210319
  Receipt Date: 20210324
  Transmission Date: 20210420
  Serious: Yes (Other)
  Sender: FDA-Public Use
  Company Number: US-BAXTER-2021BAX005299

PATIENT
  Sex: Female

DRUGS (2)
  1. DOXIL [Suspect]
     Active Substance: DOXORUBICIN HYDROCHLORIDE
     Indication: PRODUCT USED FOR UNKNOWN INDICATION
     Dosage: 6 CYCLES; MAXIMUM DOSE FOR WEIGHT
     Route: 065
  2. CARBOPLATIN. [Suspect]
     Active Substance: CARBOPLATIN
     Indication: PRODUCT USED FOR UNKNOWN INDICATION
     Dosage: MAXIMUM DOSE FOR WEIGHT
     Route: 065

REACTIONS (6)
  - Myalgia [Unknown]
  - Malignant mesenteric neoplasm [Unknown]
  - Ascites [Unknown]
  - Eating disorder [Unknown]
  - Condition aggravated [Unknown]
  - Nodule [Unknown]
